FAERS Safety Report 9845064 (Version 1)
Quarter: 2014Q1

REPORT INFORMATION
  Report Type: Spontaneous
  Country: ES (occurrence: None)
  Receive Date: 20140122
  Receipt Date: 20140122
  Transmission Date: 20141002
  Serious: Yes (Other)
  Sender: FDA-Public Use
  Company Number: 2013RN000029

PATIENT
  Age: 58 Year
  Sex: Male

DRUGS (1)
  1. ZOVIRAX [Suspect]
     Indication: HERPES ZOSTER
     Route: 048
     Dates: start: 20130821, end: 20130827

REACTIONS (1)
  - Dyspnoea [None]
